FAERS Safety Report 14928454 (Version 1)
Quarter: 2018Q2

REPORT INFORMATION
  Report Type: Spontaneous
  Country: US (occurrence: US)
  Receive Date: 20180523
  Receipt Date: 20180523
  Transmission Date: 20180711
  Serious: No
  Sender: FDA-Public Use
  Company Number: US-FDC LIMITED-2017RIS00260

PATIENT
  Age: 75 Year
  Sex: Female
  Weight: 47.17 kg

DRUGS (2)
  1. TIMOLOL MALEATE. [Suspect]
     Active Substance: TIMOLOL MALEATE
     Dosage: 1 DROP IN BOTH EYES, 1X/DAY
     Route: 047
     Dates: start: 201707
  2. ESTRACE [Concomitant]
     Active Substance: ESTRADIOL
     Dosage: UNK, 3-4X/WEEK
     Route: 061

REACTIONS (4)
  - Pruritus [Not Recovered/Not Resolved]
  - Formication [Not Recovered/Not Resolved]
  - Eczema [Not Recovered/Not Resolved]
  - Paraesthesia [Not Recovered/Not Resolved]

NARRATIVE: CASE EVENT DATE: 201709
